FAERS Safety Report 8303796-1 (Version None)
Quarter: 2012Q2

REPORT INFORMATION
  Report Type: 
  Country: None (occurrence: None)
  Receive Date: 20120423
  Receipt Date: 20120416
  Transmission Date: 20120825
  Serious: Yes (Disabling, Other)
  Sender: FDA-Public Use
  Company Number: PHEH2012US005239

PATIENT
  Sex: Female
  Weight: 54 kg

DRUGS (8)
  1. EXTAVIA [Suspect]
     Indication: MULTIPLE SCLEROSIS
     Dosage: UNK UKN, QOD
     Route: 058
     Dates: start: 20120301, end: 20120307
  2. RANITIDINE [Concomitant]
     Dosage: 150 MG, BID
  3. ZANTAC [Concomitant]
     Dosage: UNK UKN, QD
     Route: 048
  4. OXYCODONE HCL [Concomitant]
     Dosage: 3 DF, DAILY
  5. AMANTADINE HCL [Concomitant]
     Dosage: UNK UKN, QD
     Route: 048
  6. PERCOCET [Concomitant]
     Dosage: UNK UKN, PRN
     Route: 048
  7. NASACORT AQ [Concomitant]
     Dosage: 2 DF, BID
  8. FLEVERIL [Concomitant]
     Dosage: UNK UKN, QD
     Route: 048

REACTIONS (7)
  - FEELING COLD [None]
  - HEADACHE [None]
  - HOT FLUSH [None]
  - MOVEMENT DISORDER [None]
  - MYALGIA [None]
  - MUSCLE SPASMS [None]
  - ASTHENIA [None]
